FAERS Safety Report 9186558 (Version 1)
Quarter: 2013Q1

REPORT INFORMATION
  Report Type: Spontaneous
  Country: DE (occurrence: DE)
  Receive Date: 20130325
  Receipt Date: 20130325
  Transmission Date: 20140127
  Serious: Yes (Other)
  Sender: FDA-Public Use
  Company Number: DE-ROCHE-1206062

PATIENT
  Age: 6 Year
  Sex: Male

DRUGS (1)
  1. XOLAIR [Suspect]
     Indication: DERMATITIS ATOPIC
     Route: 058
     Dates: start: 20100101, end: 20100201

REACTIONS (2)
  - Secondary adrenocortical insufficiency [Recovered/Resolved]
  - Growth retardation [Recovered/Resolved]
